FAERS Safety Report 20819066 (Version 1)
Quarter: 2022Q2

REPORT INFORMATION
  Report Type: Spontaneous
  Country: RU (occurrence: None)
  Receive Date: 20220512
  Receipt Date: 20220512
  Transmission Date: 20220721
  Serious: Yes (Death, Other)
  Sender: FDA-Public Use
  Company Number: RU-Fresenius Kabi-FK202205393

PATIENT
  Age: 24 Year
  Sex: Female

DRUGS (5)
  1. ETOPOSIDE [Suspect]
     Active Substance: ETOPOSIDE
     Indication: Chemotherapy
     Dosage: INDUCTION COURSE OF CHEMOTHERAPY WAS STARTED UNDER THE CHOEP PROGRAM BASED ON 1.78 M2 OF BODY SURFAC
     Dates: start: 20210127, end: 20210129
  2. PREDNISOLONE [Suspect]
     Active Substance: PREDNISOLONE
     Indication: Chemotherapy
     Dosage: INDUCTION COURSE OF CHEMOTHERAPY WAS STARTED UNDER THE CHOEP PROGRAM BASED ON 1.78 M2 OF BODY SURFAC
     Dates: start: 20210127, end: 20210131
  3. CYCLOPHOSPHAMIDE [Suspect]
     Active Substance: CYCLOPHOSPHAMIDE
     Indication: Chemotherapy
     Dosage: INDUCTION COURSE OF CHEMOTHERAPY WAS STARTED UNDER THE CHOEP PROGRAM BASED ON 1.78 M2 OF BODY SURFAC
     Dates: start: 20210127
  4. DOXORUBICIN [Suspect]
     Active Substance: DOXORUBICIN
     Indication: Chemotherapy
     Dosage: INDUCTION COURSE OF CHEMOTHERAPY WAS STARTED UNDER THE CHOEP PROGRAM BASED ON 1.78 M2 OF BODY SURFAC
     Dates: start: 20210127
  5. VINBLASTINE [Suspect]
     Active Substance: VINBLASTINE
     Indication: Chemotherapy
     Dosage: INDUCTION COURSE OF CHEMOTHERAPY WAS STARTED UNDER THE CHOEP PROGRAM BASED ON 1.78 M2 OF BODY SURFAC
     Dates: start: 20210127

REACTIONS (4)
  - Multiple organ dysfunction syndrome [Fatal]
  - Septic shock [Fatal]
  - Agranulocytosis [Fatal]
  - Stomatitis [Unknown]
